FAERS Safety Report 7868108-6 (Version None)
Quarter: 2011Q4

REPORT INFORMATION
  Report Type: 
  Country: None (occurrence: None)
  Receive Date: 20111028
  Receipt Date: 20111018
  Transmission Date: 20120403
  Serious: Yes (Hospitalization, Other)
  Sender: FDA-Public Use
  Company Number: PHEH2010US03427

PATIENT
  Sex: Male
  Weight: 82.54 kg

DRUGS (25)
  1. TAXOTERE [Concomitant]
  2. PREDNISONE [Concomitant]
  3. AREDIA [Suspect]
     Indication: PROSTATE CANCER
     Dosage: 90 MG, QMO
     Route: 042
     Dates: start: 19981201
  4. KETOCONAZOLE [Concomitant]
  5. OMEPRAZOLE [Concomitant]
  6. AMOXICILLIN [Concomitant]
     Dosage: 500 MG, UNK
  7. FLUTAMIDE [Concomitant]
  8. DEXAMETHASONE [Concomitant]
  9. CHLORHEXIDINE GLUCONATE [Concomitant]
  10. IBUPROFEN (ADVIL) [Concomitant]
     Dosage: 2 DF, BID
  11. CALCIUM CARBONATE [Concomitant]
  12. PENICILLIN [Concomitant]
  13. RADIATION [Concomitant]
  14. PAMIDRONATE DISODIUM [Suspect]
     Dosage: UNK UKN, UNK
  15. AZITHROMYCIN [Concomitant]
  16. FERROUS SULFATE TAB [Concomitant]
  17. LASIX [Concomitant]
  18. LIPITOR [Concomitant]
  19. LEVOFLOXACIN [Concomitant]
  20. PROMETHAZINE [Concomitant]
  21. GUAIFENESIN [Concomitant]
  22. ZOMETA [Suspect]
     Indication: PROSTATE CANCER
     Dosage: 4 MG, QMO
     Route: 042
     Dates: start: 20020221
  23. MIRALAX [Concomitant]
  24. VITAMIN A [Concomitant]
  25. OXYCODONE HCL [Concomitant]

REACTIONS (42)
  - OSTEONECROSIS OF JAW [None]
  - HIATUS HERNIA [None]
  - COLONIC POLYP [None]
  - NEOPLASM PROGRESSION [None]
  - DYSPHAGIA [None]
  - INGUINAL HERNIA [None]
  - FEMORAL NECK FRACTURE [None]
  - ARTERIOSCLEROSIS CORONARY ARTERY [None]
  - ATELECTASIS [None]
  - ARTHRITIS [None]
  - GLAUCOMA [None]
  - INFECTION [None]
  - PULMONARY GRANULOMA [None]
  - BONE LESION [None]
  - PNEUMONIA [None]
  - HYPERLIPIDAEMIA [None]
  - OSTEITIS [None]
  - HIP FRACTURE [None]
  - INJURY [None]
  - PAIN [None]
  - ANXIETY [None]
  - MYOCARDIAL INFARCTION [None]
  - ABSCESS [None]
  - TOOTH LOSS [None]
  - ANHEDONIA [None]
  - ACTINIC KERATOSIS [None]
  - NEPHROLITHIASIS [None]
  - BASAL CELL CARCINOMA [None]
  - ACQUIRED OESOPHAGEAL WEB [None]
  - OSTEOARTHRITIS [None]
  - DISABILITY [None]
  - NEOPLASM MALIGNANT [None]
  - MICROCYTIC ANAEMIA [None]
  - CARDIOMEGALY [None]
  - OSTEOSCLEROSIS [None]
  - RENAL CYST [None]
  - RENAL FAILURE CHRONIC [None]
  - OESOPHAGEAL OBSTRUCTION [None]
  - MASTICATION DISORDER [None]
  - INTERVERTEBRAL DISC SPACE NARROWING [None]
  - FALL [None]
  - CATARACT [None]
